FAERS Safety Report 14922847 (Version 1)
Quarter: 2018Q2

REPORT INFORMATION
  Report Type: Spontaneous
  Country: US (occurrence: US)
  Receive Date: 20180522
  Receipt Date: 20180522
  Transmission Date: 20180711
  Serious: Yes (Life-Threatening, Hospitalization)
  Sender: FDA-Public Use
  Company Number: US-ROCHE-2123847

PATIENT
  Age: 62 Year
  Sex: Male
  Weight: 108.6 kg

DRUGS (2)
  1. ACTIVASE [Suspect]
     Active Substance: ALTEPLASE
     Indication: CEREBROVASCULAR ACCIDENT
     Route: 042
     Dates: start: 20180416
  2. ACTIVASE [Suspect]
     Active Substance: ALTEPLASE
     Route: 042

REACTIONS (9)
  - Hypertension [Unknown]
  - Urine amphetamine positive [Unknown]
  - Drug screen positive [Unknown]
  - NIH stroke scale score increased [Unknown]
  - Subarachnoid haemorrhage [Unknown]
  - Cerebral haemorrhage [Unknown]
  - Cerebral infarction [Unknown]
  - Intraventricular haemorrhage [Unknown]
  - Haemorrhage intracranial [Not Recovered/Not Resolved]

NARRATIVE: CASE EVENT DATE: 20180416
